FAERS Safety Report 24004851 (Version 2)
Quarter: 2024Q3

REPORT INFORMATION
  Report Type: Spontaneous
  Country: US (occurrence: US)
  Receive Date: 20240624
  Receipt Date: 20240704
  Transmission Date: 20241017
  Serious: Yes (Hospitalization, Other)
  Sender: BRISTOL MYERS SQUIBB
  Company Number: US-BRISTOL-MYERS SQUIBB COMPANY-2024-100406

PATIENT
  Age: 76 Year
  Sex: Male
  Weight: 103.1 kg

DRUGS (7)
  1. ELIQUIS [Suspect]
     Active Substance: APIXABAN
     Indication: Atrial fibrillation
     Route: 048
  2. ELIQUIS [Suspect]
     Active Substance: APIXABAN
     Route: 048
  3. LOPRESSOR [Concomitant]
     Active Substance: METOPROLOL TARTRATE
     Indication: Product used for unknown indication
     Route: 048
  4. XYZAL [Concomitant]
     Active Substance: LEVOCETIRIZINE DIHYDROCHLORIDE
     Indication: Product used for unknown indication
     Route: 048
  5. SYNTHROID [Concomitant]
     Active Substance: LEVOTHYROXINE SODIUM
     Indication: Product used for unknown indication
     Route: 048
  6. VITAMINS [Concomitant]
     Active Substance: VITAMINS
     Indication: Product used for unknown indication
     Route: 048
  7. PRILOSEC [Concomitant]
     Active Substance: OMEPRAZOLE MAGNESIUM
     Indication: Product used for unknown indication
     Route: 048

REACTIONS (7)
  - Liver disorder [Unknown]
  - Splenic infarction [Recovering/Resolving]
  - Inability to afford medication [Unknown]
  - Treatment noncompliance [Unknown]
  - Renal infarct [Recovering/Resolving]
  - Bladder hypertrophy [Recovering/Resolving]
  - Umbilical hernia [Recovering/Resolving]

NARRATIVE: CASE EVENT DATE: 20240617
